FAERS Safety Report 4766038-X (Version None)
Quarter: 2005Q3

REPORT INFORMATION
  Report Type: 
  Country: None (occurrence: None)
  Receive Date: 20050912
  Receipt Date: 20050831
  Transmission Date: 20060218
  Serious: Yes (Hospitalization)
  Sender: FDA-Public Use
  Company Number: JP-GLAXOSMITHKLINE-B0392465A

PATIENT
  Age: 54 Year
  Sex: Male

DRUGS (3)
  1. EPIVIR [Suspect]
     Indication: HIV INFECTION
     Dosage: 150MG TWICE PER DAY
     Route: 048
     Dates: start: 19970508, end: 20040513
  2. RETROVIR [Suspect]
     Indication: HIV INFECTION
     Route: 048
     Dates: start: 19970508, end: 20040513
  3. ZYRTEC [Concomitant]
     Dosage: 10MG TWICE PER DAY
     Route: 048
     Dates: start: 20040401, end: 20040513

REACTIONS (4)
  - HYPERGLYCAEMIA [None]
  - MALAISE [None]
  - POLYDIPSIA [None]
  - POLYURIA [None]
